FAERS Safety Report 23736349 (Version 1)
Quarter: 2024Q2

REPORT INFORMATION
  Report Type: Spontaneous
  Country: US (occurrence: US)
  Receive Date: 20240412
  Receipt Date: 20240412
  Transmission Date: 20240716
  Serious: No
  Sender: FDA-Public Use
  Company Number: US-SA-SAC20240408000664

PATIENT
  Age: 8 Year
  Sex: Male

DRUGS (2)
  1. ELOCTATE [Suspect]
     Active Substance: EFMOROCTOCOG ALFA
     Indication: Haemorrhage
     Dosage: 845 UNITS/ 1690 UNITS (ROUND UP TO THE NEAREST VIAL) IF NEEDED FOR MILD /MODERATE BLEEDING AND DOUBL
     Route: 042
  2. ELOCTATE [Suspect]
     Active Substance: EFMOROCTOCOG ALFA
     Indication: Haemorrhage
     Dosage: 845 UNITS/ 1690 UNITS (ROUND UP TO THE NEAREST VIAL) IF NEEDED FOR MILD /MODERATE BLEEDING AND DOUBL
     Route: 042

REACTIONS (2)
  - Ligament sprain [Recovering/Resolving]
  - Pyrexia [Unknown]

NARRATIVE: CASE EVENT DATE: 20240327
